FAERS Safety Report 6885129-0 (Version None)
Quarter: 2010Q3

REPORT INFORMATION
  Report Type: 
  Country: None (occurrence: None)
  Receive Date: 20100729
  Receipt Date: 20071210
  Transmission Date: 20110219
  Serious: No
  Sender: FDA-Public Use
  Company Number: US-PFIZER INC-2007103699

PATIENT
  Sex: Female
  Weight: 75.9 kg

DRUGS (6)
  1. CELEBREX [Suspect]
     Indication: ARTHRITIS
     Dates: start: 19900101
  2. ZANTAC [Concomitant]
  3. LEVOXYL [Concomitant]
  4. BENADRYL [Concomitant]
  5. VITAMINS [Concomitant]
  6. PROLIXIN [Concomitant]

REACTIONS (3)
  - HEADACHE [None]
  - MALAISE [None]
  - VOMITING [None]
